FAERS Safety Report 7287128-6 (Version None)
Quarter: 2011Q1

REPORT INFORMATION
  Report Type: 
  Country: None (occurrence: None)
  Receive Date: 20110211
  Receipt Date: 20110204
  Transmission Date: 20110831
  Serious: Yes (Hospitalization)
  Sender: FDA-Public Use
  Company Number: TR-ROCHE-757995

PATIENT
  Sex: Female
  Weight: 53 kg

DRUGS (2)
  1. PEGINTERFERON ALFA-2A [Suspect]
     Route: 058
     Dates: start: 20100814, end: 20110118
  2. COPEGUS [Suspect]
     Dosage: FREQUENCY: 3X2.
     Route: 048
     Dates: end: 20110118

REACTIONS (3)
  - DYSPNOEA EXERTIONAL [None]
  - RESPIRATORY DISTRESS [None]
  - PYREXIA [None]
